FAERS Safety Report 8375592 (Version 2)
Quarter: 2013Q1

REPORT INFORMATION
  Report Type: Report from Study
  Country: US (occurrence: US)
  Receive Date: 20120129
  Receipt Date: 20130129
  Transmission Date: 20140127
  Serious: No
  Sender: FDA-Public Use
  Company Number: US-ABBOTT-11P-163-0883897-00

PATIENT
  Age: 42 Year
  Sex: Female

DRUGS (5)
  1. HUMIRA 40 MG/0.8 ML PEN [Suspect]
     Indication: PSORIASIS
     Dates: start: 20110818
  2. HUMIRA 40 MG/0.8 ML PEN [Suspect]
  3. GLUCOPHAGE [Concomitant]
     Indication: POLYCYSTIC OVARIES
  4. SYNTHROID [Concomitant]
     Indication: THYROID DISORDER
     Dosage: 200/25MG
  5. SPIROLACTONE [Concomitant]
     Indication: HYPERTRICHOSIS

REACTIONS (2)
  - Condition aggravated [Not Recovered/Not Resolved]
  - Drug ineffective [Unknown]
